FAERS Safety Report 8504509-0 (Version None)
Quarter: 2012Q3

REPORT INFORMATION
  Report Type: 
  Country: None (occurrence: None)
  Receive Date: 20120711
  Receipt Date: 20120706
  Transmission Date: 20120928
  Serious: Yes (Other)
  Sender: FDA-Public Use
  Company Number: PL-ROCHE-1085685

PATIENT
  Sex: Female

DRUGS (1)
  1. BONIVA [Suspect]
     Indication: OSTEOPOROSIS
     Dosage: 3 MG/3ML
     Route: 042
     Dates: start: 20120608

REACTIONS (3)
  - AGITATION [None]
  - INCOHERENT [None]
  - DISORIENTATION [None]
